FAERS Safety Report 18558020 (Version 1)
Quarter: 2020Q4

REPORT INFORMATION
  Report Type: Other
  Country: US (occurrence: US)
  Receive Date: 20201130
  Receipt Date: 20201130
  Transmission Date: 20210114
  Serious: Yes (Other)
  Sender: FDA-Public Use
  Company Number: US-ROCHE-2718243

PATIENT
  Sex: Male

DRUGS (11)
  1. SERTRALINE HCL [Concomitant]
     Active Substance: SERTRALINE HYDROCHLORIDE
  2. CLOPIDOGREL BISULFATE. [Concomitant]
     Active Substance: CLOPIDOGREL BISULFATE
  3. NASONEX [Concomitant]
     Active Substance: MOMETASONE FUROATE
  4. ESBRIET [Suspect]
     Active Substance: PIRFENIDONE
     Indication: IDIOPATHIC PULMONARY FIBROSIS
     Dosage: TAKE 1 TABLET BY MOUTH 3 TIMES A DAY
     Route: 048
     Dates: start: 20180906
  5. CARDIZEM CD [Concomitant]
     Active Substance: DILTIAZEM HYDROCHLORIDE
  6. ATORVASTATIN CALCIUM. [Concomitant]
     Active Substance: ATORVASTATIN CALCIUM
  7. DULERA [Concomitant]
     Active Substance: FORMOTEROL FUMARATE DIHYDRATE\MOMETASONE FUROATE
  8. ASPIRIN. [Concomitant]
     Active Substance: ASPIRIN
  9. PANTOPRAZOLE SODIUM. [Concomitant]
     Active Substance: PANTOPRAZOLE SODIUM
  10. ZOLOFT [Concomitant]
     Active Substance: SERTRALINE HYDROCHLORIDE
  11. NITROGLYCERIN. [Concomitant]
     Active Substance: NITROGLYCERIN

REACTIONS (1)
  - Hip surgery [Unknown]
